FAERS Safety Report 9997073 (Version 4)
Quarter: 2014Q2

REPORT INFORMATION
  Report Type: Spontaneous
  Country: SG (occurrence: SG)
  Receive Date: 20140311
  Receipt Date: 20140611
  Transmission Date: 20141212
  Serious: Yes (Other)
  Sender: FDA-Public Use
  Company Number: SG-ABBVIE-14P-141-1209347-00

PATIENT
  Sex: 0

DRUGS (1)
  1. LEUPRORELIN ACETATE [Suspect]
     Indication: ENDOMETRIOSIS
     Route: 058
     Dates: start: 20140217, end: 20140217

REACTIONS (1)
  - Abortion induced [Unknown]
